FAERS Safety Report 16796337 (Version 1)
Quarter: 2019Q3

REPORT INFORMATION
  Report Type: Spontaneous
  Country: JP (occurrence: JP)
  Receive Date: 20190911
  Receipt Date: 20190911
  Transmission Date: 20191005
  Serious: Yes (Hospitalization, Other)
  Sender: FDA-Public Use
  Company Number: JP-JNJFOC-20190906604

PATIENT
  Age: 89 Year
  Sex: Male
  Weight: 58.9 kg

DRUGS (16)
  1. TRAZODONE HYDROCHLORIDE. [Suspect]
     Active Substance: TRAZODONE HYDROCHLORIDE
     Indication: PRODUCT USED FOR UNKNOWN INDICATION
     Route: 065
     Dates: start: 20190325
  2. KIPRES [Concomitant]
     Active Substance: MONTELUKAST SODIUM
     Route: 065
  3. HARNAL [Concomitant]
     Active Substance: TAMSULOSIN HYDROCHLORIDE
     Route: 065
  4. WARFARIN [Interacting]
     Active Substance: WARFARIN
     Indication: DELIRIUM
     Route: 048
     Dates: start: 20190325
  5. CEFDINIR. [Suspect]
     Active Substance: CEFDINIR
     Indication: PRODUCT USED FOR UNKNOWN INDICATION
     Route: 048
  6. QUETIAPINE FUMARATE. [Suspect]
     Active Substance: QUETIAPINE FUMARATE
     Indication: PRODUCT USED FOR UNKNOWN INDICATION
     Dosage: 12.5 UNSPECIFIED UNITS
     Route: 065
     Dates: start: 20190325
  7. DIART [Concomitant]
     Active Substance: AZOSEMIDE
     Route: 065
  8. FLUITRAN [Concomitant]
     Active Substance: TRICHLORMETHIAZIDE
  9. ALLEGRA [Concomitant]
     Active Substance: FEXOFENADINE HYDROCHLORIDE
     Route: 065
  10. REMINYL [Suspect]
     Active Substance: GALANTAMINE
     Indication: PRODUCT USED FOR UNKNOWN INDICATION
     Route: 048
     Dates: start: 20190325
  11. VFEND [Interacting]
     Active Substance: VORICONAZOLE
     Indication: URINARY TRACT INFECTION
     Route: 048
     Dates: start: 20190402, end: 20190405
  12. SAWACILLIN [Suspect]
     Active Substance: AMOXICILLIN
     Indication: URINARY TRACT INFECTION
     Route: 048
     Dates: start: 20190402, end: 20190405
  13. BELSOMRA [Suspect]
     Active Substance: SUVOREXANT
     Indication: PRODUCT USED FOR UNKNOWN INDICATION
     Route: 048
     Dates: start: 20190325
  14. TAKECAB [Concomitant]
     Active Substance: VONOPRAZAN FUMURATE
     Route: 065
  15. PIMOBENDAN [Concomitant]
     Active Substance: PIMOBENDAN
     Route: 065
  16. FEBURIC [Concomitant]
     Active Substance: FEBUXOSTAT
     Route: 065

REACTIONS (5)
  - Delirium [Recovering/Resolving]
  - Hallucination [Recovering/Resolving]
  - Prothrombin time prolonged [Recovered/Resolved]
  - Drug interaction [Unknown]
  - Condition aggravated [Recovering/Resolving]

NARRATIVE: CASE EVENT DATE: 20190404
